FAERS Safety Report 5839687-5 (Version None)
Quarter: 2008Q3

REPORT INFORMATION
  Report Type: 
  Country: None (occurrence: None)
  Receive Date: 20080730
  Receipt Date: 20080622
  Transmission Date: 20090109
  Serious: No
  Sender: FDA-Public Use
  Company Number: PHEH2008US05607

PATIENT
  Age: 62 Year
  Sex: Male

DRUGS (3)
  1. TEKTURNA [Suspect]
     Indication: HYPERTENSION
  2. BENICAR [Concomitant]
  3. AMLODIPINE [Concomitant]

REACTIONS (1)
  - ERECTILE DYSFUNCTION [None]
